FAERS Safety Report 4294493-0 (Version None)
Quarter: 2004Q1

REPORT INFORMATION
  Report Type: 
  Country: None (occurrence: None)
  Receive Date: 20040211
  Receipt Date: 20040130
  Transmission Date: 20041129
  Serious: Yes (Hospitalization)
  Sender: FDA-Public Use
  Company Number: US-JNJFOC-20040200420

PATIENT
  Age: 53 Year
  Sex: Female
  Weight: 78.9259 kg

DRUGS (3)
  1. INFLIXIMAB (INFLIXIMAB, RECOMBINANT) LYOPHILIZED POWDER [Suspect]
     Indication: CROHN'S DISEASE
     Dosage: INTRAVENOUS
     Route: 042
  2. PREDNISONE [Concomitant]
  3. ANALGESIC (ANALGESICS) [Concomitant]

REACTIONS (6)
  - HYPERHIDROSIS [None]
  - INCISIONAL HERNIA [None]
  - NAUSEA [None]
  - POSTOPERATIVE FEVER [None]
  - SMALL INTESTINAL OBSTRUCTION [None]
  - VOMITING [None]
